FAERS Safety Report 4281092-X (Version None)
Quarter: 2004Q1

REPORT INFORMATION
  Report Type: 
  Country: None (occurrence: None)
  Receive Date: 20040108
  Receipt Date: 20021216
  Transmission Date: 20041129
  Serious: Yes (Hospitalization)
  Sender: FDA-Public Use
  Company Number: HQ5810417DEC2002

PATIENT
  Age: 60 Year
  Sex: Female

DRUGS (5)
  1. PREMPRO [Suspect]
     Dosage: 0.625 MG, ORAL
     Route: 048
     Dates: start: 19990101, end: 20021129
  2. BETASERON [Suspect]
     Indication: MULTIPLE SCLEROSIS
     Dosage: 8 MIU, EVERY SECOND DAY, SUBCUTANEOUS
     Route: 058
     Dates: start: 20020401
  3. BETASERON [Suspect]
     Indication: PAIN IN EXTREMITY
     Dosage: 8 MIU, EVERY SECOND DAY, SUBCUTANEOUS
     Route: 058
     Dates: start: 20020401
  4. ZOLOFT [Concomitant]
  5. NEURONTIN [Concomitant]

REACTIONS (1)
  - DEEP VEIN THROMBOSIS [None]
